FAERS Safety Report 24645116 (Version 1)
Quarter: 2024Q4

REPORT INFORMATION
  Report Type: Spontaneous
  Country: US (occurrence: US)
  Receive Date: 20241121
  Receipt Date: 20241121
  Transmission Date: 20250114
  Serious: No
  Sender: ROCHE
  Company Number: US-ROCHE-10000133725

PATIENT
  Sex: Female

DRUGS (3)
  1. TECENTRIQ HYBREZA [Suspect]
     Active Substance: ATEZOLIZUMAB\HYALURONIDASE-TQJS
     Indication: Hepatocellular carcinoma
     Route: 065
  2. TECENTRIQ [Suspect]
     Active Substance: ATEZOLIZUMAB
     Indication: Hepatocellular carcinoma
     Route: 042
  3. AVASTIN [Suspect]
     Active Substance: BEVACIZUMAB
     Indication: Hepatocellular carcinoma
     Route: 042

REACTIONS (3)
  - Dizziness [Recovered/Resolved]
  - Flushing [Recovered/Resolved]
  - Product after taste [Unknown]
